FAERS Safety Report 11038819 (Version 3)
Quarter: 2015Q3

REPORT INFORMATION
  Report Type: Spontaneous
  Country: US (occurrence: US)
  Receive Date: 20150416
  Receipt Date: 20150820
  Transmission Date: 20151125
  Serious: Yes (Death, Hospitalization, Other)
  Sender: FDA-Public Use
  Company Number: US-009507513-1504USA015486

PATIENT
  Sex: Male
  Weight: 73.47 kg

DRUGS (1)
  1. JANUVIA [Suspect]
     Active Substance: SITAGLIPTIN PHOSPHATE
     Indication: TYPE 2 DIABETES MELLITUS
     Dosage: 100 MG, QD
     Route: 048
     Dates: start: 20070507, end: 20091004

REACTIONS (29)
  - Anaemia [Unknown]
  - Cardiomegaly [Unknown]
  - Metastases to liver [Unknown]
  - Hyperbilirubinaemia [Unknown]
  - Pulmonary embolism [Unknown]
  - Electrolyte imbalance [Unknown]
  - Oedema [Unknown]
  - Cardiac failure congestive [Unknown]
  - Hypomagnesaemia [Unknown]
  - Hypocalcaemia [Recovered/Resolved]
  - Pancreatic carcinoma [Fatal]
  - Cholangitis [Unknown]
  - Liver disorder [Unknown]
  - Radiotherapy [Recovering/Resolving]
  - Bile duct stent insertion [Unknown]
  - Device occlusion [Unknown]
  - Stent placement [Unknown]
  - Ascites [Unknown]
  - Arteriosclerosis [Unknown]
  - Bile duct stenosis [Unknown]
  - Metastases to lung [Unknown]
  - Pancreatitis [Unknown]
  - Coronary artery bypass [Unknown]
  - Nephrolithiasis [Unknown]
  - Atrial fibrillation [Unknown]
  - Pancreatic mass [Unknown]
  - Anticoagulation drug level below therapeutic [Unknown]
  - Hypophosphataemia [Unknown]
  - Blood potassium increased [Unknown]

NARRATIVE: CASE EVENT DATE: 2009
